FAERS Safety Report 6322723-X (Version None)
Quarter: 2009Q3

REPORT INFORMATION
  Report Type: 
  Country: None (occurrence: None)
  Receive Date: 20090824
  Receipt Date: 20090306
  Transmission Date: 20100115
  Serious: No
  Sender: FDA-Public Use
  Company Number: US-ABBOTT-09P-163-0561258-00

PATIENT
  Sex: Male
  Weight: 106.69 kg

DRUGS (4)
  1. NIASPAN [Suspect]
     Indication: CARDIOVASCULAR EVENT PROPHYLAXIS
     Dates: start: 20080801, end: 20080801
  2. NIASPAN [Suspect]
     Route: 048
     Dates: start: 20090226
  3. DIOVAN [Concomitant]
     Indication: HYPERTENSION
     Dosage: 160/12.5 MG
     Route: 048
  4. RESVERATROL [Concomitant]
     Indication: CARDIOVASCULAR EVENT PROPHYLAXIS
     Dosage: UNKNOWN
     Route: 048

REACTIONS (1)
  - FLUSHING [None]
